FAERS Safety Report 5199261-3 (Version None)
Quarter: 2007Q1

REPORT INFORMATION
  Report Type: 
  Country: None (occurrence: None)
  Receive Date: 20070104
  Receipt Date: 20061228
  Transmission Date: 20070707
  Serious: Yes (Hospitalization)
  Sender: FDA-Public Use
  Company Number: SE-PFIZER INC-2007000057

PATIENT
  Age: 82 Year
  Sex: Female

DRUGS (8)
  1. LYRICA [Suspect]
     Indication: NEPHROPATHY
     Route: 048
  2. ALLOPURINOL SODIUM [Concomitant]
  3. LASIX [Concomitant]
  4. NITROMEX [Concomitant]
  5. SPIRONOLACTONE [Concomitant]
  6. ALL OTHER THERAPEUTIC PRODUCTS [Concomitant]
  7. TRIOBE [Concomitant]
  8. NOVOMIX [Concomitant]

REACTIONS (2)
  - FLUID RETENTION [None]
  - THIRST [None]
